FAERS Safety Report 7219218-8 (Version None)
Quarter: 2011Q1

REPORT INFORMATION
  Report Type: 
  Country: None (occurrence: None)
  Receive Date: 20110111
  Receipt Date: 20101228
  Transmission Date: 20110831
  Serious: Yes (Other)
  Sender: FDA-Public Use
  Company Number: US-PFIZER INC-2010180484

PATIENT
  Sex: Female

DRUGS (2)
  1. NEURONTIN [Suspect]
     Dosage: 600 MG, 2X/DAY
  2. NEURONTIN [Suspect]
     Indication: NEURALGIA
     Dosage: UNK
     Route: 048
     Dates: start: 19980101

REACTIONS (1)
  - VAGINAL HAEMORRHAGE [None]
